FAERS Safety Report 25970498 (Version 1)
Quarter: 2025Q4

REPORT INFORMATION
  Report Type: Spontaneous
  Country: AU (occurrence: None)
  Receive Date: 20251028
  Receipt Date: 20251028
  Transmission Date: 20260118
  Serious: Yes (Hospitalization)
  Sender: UCB
  Company Number: None

PATIENT
  Age: 66 Year

DRUGS (1)
  1. BIMEKIZUMAB [Suspect]
     Active Substance: BIMEKIZUMAB
     Indication: Psoriatic arthropathy
     Dosage: UNK, MONTHLY

REACTIONS (2)
  - Urticaria [Recovering/Resolving]
  - Injection site reaction [Recovering/Resolving]
